FAERS Safety Report 15280331 (Version 3)
Quarter: 2018Q4

REPORT INFORMATION
  Report Type: Spontaneous
  Country: FR (occurrence: FR)
  Receive Date: 20180815
  Receipt Date: 20181022
  Transmission Date: 20190204
  Serious: Yes (Hospitalization)
  Sender: FDA-Public Use
  Company Number: FR-PFIZER INC-2018320327

PATIENT
  Age: 60 Year
  Sex: Male
  Weight: 58 kg

DRUGS (10)
  1. ZALTRAP [Suspect]
     Active Substance: ZIV-AFLIBERCEPT
     Indication: RECTAL NEOPLASM
     Dosage: 212 MG, CYCLIC
     Route: 042
     Dates: start: 20171030
  2. CALCIUM LEVOFOLINATE [Concomitant]
     Active Substance: LEVOLEUCOVORIN CALCIUM
     Dosage: 315 MG, 1X/DAY
     Route: 042
     Dates: start: 20171030, end: 20171130
  3. FLUOROURACIL. [Suspect]
     Active Substance: FLUOROURACIL
     Dosage: 650 MG, CYCLIC
     Route: 042
     Dates: start: 20171030
  4. FLUOROURACIL. [Suspect]
     Active Substance: FLUOROURACIL
     Indication: RECTAL NEOPLASM
     Dosage: 3800 MG, UNK
     Route: 042
     Dates: start: 20171030
  5. ATORVASTATINE /01326101/ [Concomitant]
     Active Substance: ATORVASTATIN
     Dosage: 80 MG, 1X/DAY
     Route: 048
  6. ACEBUTOLOL /00405702/ [Concomitant]
     Active Substance: ACEBUTOLOL
     Dosage: 200 MG, 1X/DAY
     Route: 048
  7. IRINOTECAN HCL [Suspect]
     Active Substance: IRINOTECAN HYDROCHLORIDE
     Indication: RECTAL NEOPLASM
     Dosage: 240 MG, CYCLIC
     Route: 042
     Dates: start: 20171030
  8. KARDEGIC [Concomitant]
     Active Substance: ASPIRIN DL-LYSINE
     Dosage: 1 DF, 1X/DAY
     Route: 048
  9. KEPPRA [Concomitant]
     Active Substance: LEVETIRACETAM
     Dosage: 1.5 DF, 1X/DAY
     Route: 048
  10. OMEPRAZOLE. [Concomitant]
     Active Substance: OMEPRAZOLE
     Dosage: 20 MG, 1X/DAY
     Route: 048

REACTIONS (4)
  - Sepsis [Recovering/Resolving]
  - General physical health deterioration [Recovering/Resolving]
  - Renal failure [Recovering/Resolving]
  - Dehydration [Recovering/Resolving]

NARRATIVE: CASE EVENT DATE: 20171109
